FAERS Safety Report 9271294 (Version 1)
Quarter: 2013Q2

REPORT INFORMATION
  Report Type: Spontaneous
  Country: IT (occurrence: IT)
  Receive Date: 20130506
  Receipt Date: 20130506
  Transmission Date: 20140414
  Serious: Yes (Hospitalization)
  Sender: FDA-Public Use
  Company Number: PHHY2013IT043370

PATIENT
  Sex: Female

DRUGS (3)
  1. GILENYA [Suspect]
     Indication: RELAPSING-REMITTING MULTIPLE SCLEROSIS
     Dosage: 0.5 MG, QD
     Route: 048
     Dates: start: 20130326, end: 20130327
  2. MANTADAN [Concomitant]
     Route: 048
  3. CONTRAMAL [Concomitant]
     Route: 048

REACTIONS (1)
  - Electrocardiogram QT prolonged [Recovering/Resolving]
